FAERS Safety Report 6660832-6 (Version None)
Quarter: 2010Q1

REPORT INFORMATION
  Report Type: 
  Country: None (occurrence: None)
  Receive Date: 20100331
  Receipt Date: 20100225
  Transmission Date: 20100710
  Serious: No
  Sender: FDA-Public Use
  Company Number: US-BIOGENIDEC-2010BI007836

PATIENT
  Age: 33 Year
  Sex: Female

DRUGS (5)
  1. TYSABRI [Suspect]
     Indication: MULTIPLE SCLEROSIS
     Route: 042
     Dates: start: 20090514
  2. RANITIDINE [Concomitant]
  3. DARVOCET [Concomitant]
  4. ALBUTEROL [Concomitant]
  5. BACTRIM [Concomitant]

REACTIONS (2)
  - PNEUMONIA [None]
  - SINUSITIS [None]
